FAERS Safety Report 11143325 (Version 1)
Quarter: 2015Q2

REPORT INFORMATION
  Report Type: Spontaneous
  Country: US (occurrence: US)
  Receive Date: 20150526
  Receipt Date: 20150526
  Transmission Date: 20150821
  Serious: No
  Sender: FDA-Public Use
  Company Number: US-ASTRAZENECA-2015SE45543

PATIENT
  Age: 23430 Day
  Sex: Male
  Weight: 149.7 kg

DRUGS (7)
  1. CRESTOR [Suspect]
     Active Substance: ROSUVASTATIN CALCIUM
     Indication: LIPIDS ABNORMAL
     Route: 048
  2. ONGLYZA [Suspect]
     Active Substance: SAXAGLIPTIN HYDROCHLORIDE
     Indication: TYPE 2 DIABETES MELLITUS
     Route: 048
  3. GLUMETZA [Concomitant]
     Active Substance: METFORMIN HYDROCHLORIDE
  4. IMODIUM [Concomitant]
     Active Substance: LOPERAMIDE HYDROCHLORIDE
  5. TOPROL XL [Suspect]
     Active Substance: METOPROLOL SUCCINATE
     Route: 048
  6. NIACIN. [Concomitant]
     Active Substance: NIACIN
  7. ONGLYZA [Suspect]
     Active Substance: SAXAGLIPTIN HYDROCHLORIDE
     Indication: TYPE 2 DIABETES MELLITUS
     Dosage: SPLIT THE 5MG TABLET IN HALF FOR THE FIRST 4 DAYS
     Route: 048
     Dates: start: 20150506

REACTIONS (5)
  - Abdominal discomfort [Recovering/Resolving]
  - Off label use [Unknown]
  - Diarrhoea [Recovering/Resolving]
  - Nausea [Recovering/Resolving]
  - Blood glucose increased [Unknown]

NARRATIVE: CASE EVENT DATE: 20150506
